FAERS Safety Report 18847753 (Version 2)
Quarter: 2021Q1

REPORT INFORMATION
  Report Type: Report from Study
  Country: US (occurrence: US)
  Receive Date: 20210204
  Receipt Date: 20210218
  Transmission Date: 20210419
  Serious: Yes (Hospitalization)
  Sender: FDA-Public Use
  Company Number: US-EISAI MEDICAL RESEARCH-EC-2021-087229

PATIENT
  Age: 55 Year
  Sex: Male

DRUGS (2)
  1. LENVIMA [Suspect]
     Active Substance: LENVATINIB
     Indication: METASTASES TO LYMPH NODES
     Route: 048
     Dates: start: 20210204
  2. LENVIMA [Suspect]
     Active Substance: LENVATINIB
     Indication: HEPATIC CANCER
     Route: 048
     Dates: start: 20210121, end: 20210127

REACTIONS (6)
  - Pain [Unknown]
  - Fine motor skill dysfunction [Unknown]
  - Disturbance in attention [Unknown]
  - Ammonia increased [Unknown]
  - Confusional state [Unknown]
  - Arthropathy [Unknown]

NARRATIVE: CASE EVENT DATE: 202101
